FAERS Safety Report 9919566 (Version 1)
Quarter: 2014Q1

REPORT INFORMATION
  Report Type: Spontaneous
  Country: US (occurrence: US)
  Receive Date: 20140224
  Receipt Date: 20140224
  Transmission Date: 20141002
  Serious: No
  Sender: FDA-Public Use
  Company Number: US-009507513-1402USA009127

PATIENT
  Sex: 0

DRUGS (1)
  1. AZASITE [Suspect]
     Route: 047

REACTIONS (3)
  - Drug dispensing error [Unknown]
  - Circumstance or information capable of leading to device use error [Unknown]
  - No adverse event [Unknown]
